FAERS Safety Report 24151091 (Version 1)
Quarter: 2024Q3

REPORT INFORMATION
  Report Type: Spontaneous
  Country: IT (occurrence: IT)
  Receive Date: 20240730
  Receipt Date: 20240730
  Transmission Date: 20241017
  Serious: Yes (Other)
  Sender: RANBAXY
  Company Number: IT-SUN PHARMACEUTICAL INDUSTRIES LTD-2024RR-459992

PATIENT
  Age: 55 Year
  Sex: Female

DRUGS (2)
  1. GEMCITABINE [Suspect]
     Active Substance: GEMCITABINE
     Indication: Bladder cancer
     Dosage: START OF THERAPY 05/10/2023 - THERAPY EVERY 21 DAYS, ON DAYS 1 AND 8 - V CYCLE
     Route: 040
     Dates: start: 20240116, end: 20240123
  2. CISPLATIN [Suspect]
     Active Substance: CISPLATIN
     Indication: Bladder cancer
     Dosage: THERAPY START 05/10/2023 - THERAPY EVERY 21 DAYS - V
     Route: 042
     Dates: start: 20240116, end: 20240116

REACTIONS (1)
  - Pancytopenia [Recovered/Resolved]

NARRATIVE: CASE EVENT DATE: 20240205
